FAERS Safety Report 14265357 (Version 3)
Quarter: 2017Q4

REPORT INFORMATION
  Report Type: Spontaneous
  Country: DE (occurrence: DE)
  Receive Date: 20171208
  Receipt Date: 20171220
  Transmission Date: 20180321
  Serious: Yes (Hospitalization, Other)
  Sender: FDA-Public Use
  Company Number: DE-BAYER-2017-171705

PATIENT
  Age: 35 Year
  Sex: Female
  Weight: 62 kg

DRUGS (1)
  1. JAYDESS [Suspect]
     Active Substance: LEVONORGESTREL
     Indication: CONTRACEPTION
     Dosage: 14 MCG/24HR, CONT
     Route: 015
     Dates: start: 20150421, end: 20160527

REACTIONS (9)
  - Uterine perforation [None]
  - Cardiovascular disorder [None]
  - Pain [None]
  - Device use issue [None]
  - Device issue [None]
  - Device dislocation [None]
  - Abdominal pain [None]
  - Complication of device insertion [None]
  - Procedural pain [Unknown]

NARRATIVE: CASE EVENT DATE: 20150421
